FAERS Safety Report 8738413 (Version 3)
Quarter: 2013Q4

REPORT INFORMATION
  Report Type: Spontaneous
  Country: US (occurrence: US)
  Receive Date: 20120823
  Receipt Date: 20131009
  Transmission Date: 20140711
  Serious: Yes (Hospitalization, Disabling, Other)
  Sender: FDA-Public Use
  Company Number: US-009507513-1208USA005575

PATIENT
  Sex: Female

DRUGS (6)
  1. FOSAMAX [Suspect]
     Indication: OSTEOPENIA
     Dosage: 70 MG, UNK
     Route: 048
     Dates: start: 20010125, end: 20080301
  2. CYANOCOBALAMIN [Concomitant]
     Dosage: 500 MG, BID
     Dates: start: 2000
  3. FOLIC ACID [Concomitant]
     Dosage: 1 MG, BID
     Dates: start: 2000
  4. GLUCOSAMINE [Concomitant]
     Dosage: 500 MG, TID
     Dates: start: 2000
  5. SINGULAIR [Concomitant]
     Indication: HYPERSENSITIVITY
  6. DACOGEN [Concomitant]
     Indication: SICKLE CELL ANAEMIA

REACTIONS (10)
  - Femur fracture [Not Recovered/Not Resolved]
  - Intramedullary rod insertion [Unknown]
  - Low turnover osteopathy [Not Recovered/Not Resolved]
  - Osteoporosis [Not Recovered/Not Resolved]
  - Stress fracture [Not Recovered/Not Resolved]
  - Femur fracture [Not Recovered/Not Resolved]
  - Medical device removal [Unknown]
  - Radius fracture [Unknown]
  - Device failure [Unknown]
  - Oral surgery [Unknown]
